FAERS Safety Report 6545322-3 (Version None)
Quarter: 2010Q1

REPORT INFORMATION
  Report Type: 
  Country: None (occurrence: None)
  Receive Date: 20100121
  Receipt Date: 20100115
  Transmission Date: 20100710
  Serious: Yes (Hospitalization)
  Sender: FDA-Public Use
  Company Number: US-MERCK-1001USA01412

PATIENT
  Age: 67 Year
  Sex: Female

DRUGS (1)
  1. DECADRON [Suspect]
     Indication: STEM CELL TRANSPLANT
     Route: 048

REACTIONS (1)
  - DISORIENTATION [None]
